FAERS Safety Report 8812205 (Version 2)
Quarter: 2012Q4

REPORT INFORMATION
  Report Type: 
  Country: US (occurrence: US)
  Receive Date: 20120927
  Receipt Date: 20121026
  Transmission Date: 20130627
  Serious: Yes (Death, Hospitalization)
  Sender: FDA-Public Use
  Company Number: US-CELGENEUS-163-21880-12091453

PATIENT
  Age: 76 Year
  Sex: Female

DRUGS (1)
  1. REVLIMID [Suspect]
     Indication: MANTLE CELL LYMPHOMA
     Dosage: 15 Milligram
     Route: 048
     Dates: start: 20120818, end: 20120831

REACTIONS (4)
  - Mantle cell lymphoma [Fatal]
  - Diarrhoea [Unknown]
  - Dehydration [Unknown]
  - Pancytopenia [Unknown]
